FAERS Safety Report 7819319-7 (Version None)
Quarter: 2011Q4

REPORT INFORMATION
  Report Type: 
  Country: None (occurrence: None)
  Receive Date: 20111018
  Receipt Date: 20110512
  Transmission Date: 20120403
  Serious: No
  Sender: FDA-Public Use
  Company Number: US-ASTRAZENECA-2011SE20932

PATIENT
  Age: 76 Year
  Sex: Female

DRUGS (1)
  1. SYMBICORT [Suspect]
     Indication: DYSPNOEA
     Dosage: 160/4.5 MCG 1 PUFF TWO TIMES A DAY
     Route: 055
     Dates: start: 20100101

REACTIONS (3)
  - DYSPNOEA [None]
  - EYE DISORDER [None]
  - INCORRECT DOSE ADMINISTERED [None]
